FAERS Safety Report 20427874 (Version 2)
Quarter: 2022Q3

REPORT INFORMATION
  Report Type: Report from Study
  Country: BR (occurrence: BR)
  Receive Date: 20220204
  Receipt Date: 20220722
  Transmission Date: 20221027
  Serious: Yes (Hospitalization, Other)
  Sender: FDA-Public Use
  Company Number: BR-JNJFOC-20220155649

PATIENT
  Age: 25 Year
  Sex: Female
  Weight: 85 kg

DRUGS (3)
  1. INFLIXIMAB [Suspect]
     Active Substance: INFLIXIMAB
     Indication: Colitis
     Dosage: FROM 2 YEARS
     Route: 041
  2. HYDROCHLOROTHIAZIDE [Concomitant]
     Active Substance: HYDROCHLOROTHIAZIDE
  3. LOSARTAN [Concomitant]
     Active Substance: LOSARTAN

REACTIONS (5)
  - Haemolytic uraemic syndrome [Recovering/Resolving]
  - Renal impairment [Recovering/Resolving]
  - Hepatitis [Unknown]
  - Gastrointestinal infection [Unknown]
  - Hypertension [Recovered/Resolved]

NARRATIVE: CASE EVENT DATE: 20210201
